FAERS Safety Report 6037294-5 (Version None)
Quarter: 2009Q1

REPORT INFORMATION
  Report Type: 
  Country: None (occurrence: None)
  Receive Date: 20090114
  Receipt Date: 20090112
  Transmission Date: 20090719
  Serious: Yes (Life-Threatening, Hospitalization)
  Sender: FDA-Public Use
  Company Number: D0060137A

PATIENT
  Age: 65 Year
  Sex: Male
  Weight: 76 kg

DRUGS (6)
  1. CEFUROXIME AXETIL [Suspect]
     Indication: URINARY TRACT INFECTION
     Route: 048
     Dates: start: 20080508, end: 20080508
  2. ASPIRIN [Concomitant]
     Dosage: 100MG PER DAY
     Route: 048
  3. ATENOLOL [Concomitant]
     Dosage: 12.5MG TWICE PER DAY
     Route: 048
  4. CIPRALEX [Concomitant]
     Indication: DEPRESSION
     Route: 048
  5. METHIONINE [Concomitant]
     Indication: URINARY TRACT INFECTION
     Dosage: 500MG THREE TIMES PER DAY
     Route: 048
  6. CLONAZEPAM [Concomitant]
     Indication: EPILEPSY
     Dosage: .25MG PER DAY
     Route: 048

REACTIONS (2)
  - HYPERSENSITIVITY [None]
  - SYNCOPE [None]
